FAERS Safety Report 14441921 (Version 2)
Quarter: 2018Q2

REPORT INFORMATION
  Report Type: Report from Study
  Country: US (occurrence: US)
  Receive Date: 20180125
  Receipt Date: 20180423
  Transmission Date: 20180711
  Serious: No
  Sender: FDA-Public Use
  Company Number: US-AMGEN-USASL2017184037

PATIENT
  Age: 81 Year
  Sex: Female

DRUGS (2)
  1. REPATHA [Suspect]
     Active Substance: EVOLOCUMAB
     Indication: BLOOD CHOLESTEROL INCREASED
  2. REPATHA [Suspect]
     Active Substance: EVOLOCUMAB
     Indication: HYPERCHOLESTEROLAEMIA
     Dosage: 140 MG, Q2WK
     Route: 065

REACTIONS (17)
  - Neck pain [Unknown]
  - Contusion [Not Recovered/Not Resolved]
  - Back pain [Unknown]
  - Dysphonia [Unknown]
  - Insomnia [Unknown]
  - Ear congestion [Unknown]
  - Ear pain [Unknown]
  - Pain in extremity [Unknown]
  - Nasal congestion [Unknown]
  - Musculoskeletal pain [Unknown]
  - Off label use [Unknown]
  - Gait disturbance [Unknown]
  - Rhinorrhoea [Recovered/Resolved]
  - Neuropathy peripheral [Unknown]
  - Muscle spasms [Not Recovered/Not Resolved]
  - Oropharyngeal pain [Not Recovered/Not Resolved]
  - Injection site bruising [Unknown]

NARRATIVE: CASE EVENT DATE: 2017
